FAERS Safety Report 10786046 (Version 2)
Quarter: 2015Q2

REPORT INFORMATION
  Report Type: Spontaneous
  Country: US (occurrence: US)
  Receive Date: 20150211
  Receipt Date: 20150515
  Transmission Date: 20150821
  Serious: Yes (Other)
  Sender: FDA-Public Use
  Company Number: US-TEVA-540137USA

PATIENT
  Age: 36 Year
  Sex: Female
  Weight: 65.83 kg

DRUGS (3)
  1. PARAGARD T 380A [Suspect]
     Active Substance: COPPER
     Route: 015
     Dates: start: 20101105
  2. PARAGARD T 380A [Suspect]
     Active Substance: COPPER
     Indication: CONTRACEPTION
     Route: 015
     Dates: start: 20140407, end: 20150112
  3. PARAGARD T 380A [Suspect]
     Active Substance: COPPER
     Route: 015
     Dates: start: 20150126

REACTIONS (13)
  - Pelvic inflammatory disease [Recovered/Resolved]
  - Urinary tract infection [Recovered/Resolved]
  - Abdominal pain [Recovered/Resolved]
  - Groin pain [Unknown]
  - Gastrooesophageal reflux disease [Unknown]
  - Constipation [Recovered/Resolved]
  - Device dislocation [Recovered/Resolved]
  - Vulvovaginal candidiasis [Unknown]
  - Vulvovaginitis [Unknown]
  - Back pain [Unknown]
  - Dermatitis contact [Unknown]
  - Vaginal infection [Unknown]
  - Radiculopathy [Unknown]

NARRATIVE: CASE EVENT DATE: 20140407
